FAERS Safety Report 25240177 (Version 4)
Quarter: 2025Q2

REPORT INFORMATION
  Report Type: Spontaneous
  Country: US (occurrence: US)
  Receive Date: 20250425
  Receipt Date: 20250626
  Transmission Date: 20250717
  Serious: Yes (Hospitalization)
  Sender: PFIZER
  Company Number: US-PFIZER INC-PV202500049015

PATIENT
  Age: 53 Year
  Sex: Female
  Weight: 74.83 kg

DRUGS (1)
  1. TIVDAK [Suspect]
     Active Substance: TISOTUMAB VEDOTIN-TFTV
     Indication: Cervix carcinoma
     Dosage: 174 MG, Q (EVERY) 3 WEEKS
     Route: 042
     Dates: start: 20250415, end: 20250513

REACTIONS (2)
  - Confusional state [Recovered/Resolved]
  - Vaginal haemorrhage [Recovered/Resolved]

NARRATIVE: CASE EVENT DATE: 20250415
